FAERS Safety Report 18572177 (Version 1)
Quarter: 2020Q4

REPORT INFORMATION
  Report Type: Report from Study
  Country: IT (occurrence: IT)
  Receive Date: 20201202
  Receipt Date: 20201202
  Transmission Date: 20210114
  Serious: Yes (Death)
  Sender: FDA-Public Use
  Company Number: IT-PFIZER INC-2020470389

PATIENT
  Age: 67 Year
  Sex: Male

DRUGS (4)
  1. CYTARABINE. [Suspect]
     Active Substance: CYTARABINE
     Indication: ACUTE MYELOID LEUKAEMIA
     Dosage: 1890 MG, CYCLIC
     Route: 042
     Dates: start: 20191031, end: 20200513
  2. GILTERITINIB [Suspect]
     Active Substance: GILTERITINIB
     Indication: ACUTE MYELOID LEUKAEMIA
     Dosage: 1 DF, CYCLIC
     Route: 048
     Dates: start: 20200718, end: 20200803
  3. IDARUBICIN HCL [Suspect]
     Active Substance: IDARUBICIN HYDROCHLORIDE
     Indication: ACUTE MYELOID LEUKAEMIA
     Dosage: 15 MG, CYCLIC
     Route: 042
     Dates: start: 20191031, end: 20200511
  4. FLUDARABINE PHOSPHATE. [Suspect]
     Active Substance: FLUDARABINE PHOSPHATE
     Indication: ACUTE MYELOID LEUKAEMIA
     Dosage: 35 MG, CYCLIC
     Route: 042
     Dates: start: 20191031, end: 20200513

REACTIONS (4)
  - Blood pressure increased [Fatal]
  - Neutropenia [Fatal]
  - Hyperpyrexia [Fatal]
  - Urinary tract infection [Fatal]

NARRATIVE: CASE EVENT DATE: 20200803
